FAERS Safety Report 4893433-0 (Version None)
Quarter: 2006Q1

REPORT INFORMATION
  Report Type: 
  Country: None (occurrence: None)
  Receive Date: 20060127
  Receipt Date: 20060116
  Transmission Date: 20060701
  Serious: Yes (Hospitalization)
  Sender: FDA-Public Use
  Company Number: PHBS2006IN01209

PATIENT
  Age: 25 Year
  Sex: Female
  Weight: 60 kg

DRUGS (9)
  1. DICLOFENAC SODIUM [Suspect]
     Indication: PROCEDURAL PAIN
     Dosage: 75 MG, ONCE/SINGLE
     Route: 030
  2. METOCLOPRAMIDE [Concomitant]
     Dosage: 10 MG, ONCE/SINGLE
     Route: 042
  3. RANITIDINE [Concomitant]
     Dosage: 150 MG, ONCE/SINGLE
  4. TAVANIC [Suspect]
     Dosage: 200 MG, ONCE/SINGLE
     Route: 042
  5. PROPOFOL [Concomitant]
     Dosage: 1 MG/KG, ONCE/SINGLE
  6. FENTANYL CITRATE [Concomitant]
     Dosage: 1 UG/KG, ONCE/SINGLE
  7. VECURONIUM BROMIDE [Concomitant]
     Dosage: 0.1 MG/KG, ONCE/SINGLE
  8. NEOSTIGMINE [Concomitant]
     Dosage: 0.04 MG/KG, ONCE/SINGLE
  9. ATROPINE [Concomitant]
     Dosage: 0.02 MG/KG, ONCE/SINGLE

REACTIONS (6)
  - DRUG INTERACTION [None]
  - GRAND MAL CONVULSION [None]
  - HEADACHE [None]
  - MYOCLONUS [None]
  - RESTLESSNESS [None]
  - SOMNOLENCE [None]
